FAERS Safety Report 5970975-8 (Version None)
Quarter: 2008Q4

REPORT INFORMATION
  Report Type: 
  Country: None (occurrence: None)
  Receive Date: 20081128
  Receipt Date: 20081120
  Transmission Date: 20090506
  Serious: Yes (Hospitalization, Other)
  Sender: FDA-Public Use
  Company Number: PHEH2008US10433

PATIENT
  Age: 73 Year
  Sex: Male

DRUGS (5)
  1. TEKTURNA [Suspect]
     Indication: HYPERTENSION
     Dosage: 300 MG, QD
     Dates: start: 20080101
  2. HYTRIN [Concomitant]
     Dosage: 10 MG, QHS
     Dates: end: 20080101
  3. UROXATRAL [Concomitant]
     Dosage: UNK
     Dates: start: 20080101
  4. AMILORIDE HCL AND HYDROCHLOROTHIAZIDE [Concomitant]
  5. ASPIRIN [Concomitant]
     Dosage: 81 MG, UNK

REACTIONS (5)
  - ABDOMINAL PAIN [None]
  - DIZZINESS [None]
  - ENDOSCOPY [None]
  - GASTRITIS [None]
  - PNEUMONIA VIRAL [None]
